FAERS Safety Report 9258667 (Version 1)
Quarter: 2013Q2

REPORT INFORMATION
  Report Type: Spontaneous
  Country: US (occurrence: None)
  Receive Date: 20130425
  Receipt Date: 20130425
  Transmission Date: 20140414
  Serious: Yes (Other)
  Sender: FDA-Public Use
  Company Number: None

PATIENT
  Age: 48 Year
  Sex: Female

DRUGS (2)
  1. MONTELUKAST [Suspect]
     Indication: RHINITIS ALLERGIC
     Route: 048
     Dates: start: 20130322, end: 20130410
  2. MONTELUKAST [Suspect]
     Indication: COUGH
     Route: 048
     Dates: start: 20130322, end: 20130410

REACTIONS (3)
  - Defaecation urgency [None]
  - Muscle spasms [None]
  - Diarrhoea [None]
